FAERS Safety Report 4417629-7 (Version None)
Quarter: 2004Q3

REPORT INFORMATION
  Report Type: 
  Country: None (occurrence: None)
  Receive Date: 20040803
  Receipt Date: 20040722
  Transmission Date: 20050211
  Serious: Yes (Other)
  Sender: FDA-Public Use
  Company Number: K200401092

PATIENT
  Age: 69 Year
  Sex: Male

DRUGS (3)
  1. ALTACE [Suspect]
     Indication: HYPERTENSION
     Dosage: SEE IMAGE
     Route: 048
     Dates: start: 20040611, end: 20040601
  2. ALTACE [Suspect]
     Indication: HYPERTENSION
     Dosage: SEE IMAGE
     Route: 048
     Dates: start: 20040601, end: 20040626
  3. CO-TENIDONE (CHLORTALIDONE, ATENOLOL) [Concomitant]

REACTIONS (1)
  - URINE FLOW DECREASED [None]
